FAERS Safety Report 5881553-3 (Version None)
Quarter: 2008Q3

REPORT INFORMATION
  Report Type: 
  Country: None (occurrence: None)
  Receive Date: 20080912
  Receipt Date: 20080702
  Transmission Date: 20090109
  Serious: No
  Sender: FDA-Public Use
  Company Number: US-ABBOTT-08P-163-0460675-00

PATIENT
  Sex: Male
  Weight: 129.39 kg

DRUGS (8)
  1. HUMIRA [Suspect]
     Indication: PSORIATIC ARTHROPATHY
     Dates: start: 20080613, end: 20080702
  2. FOLIC ACID [Concomitant]
     Indication: DRUG USE FOR UNKNOWN INDICATION
  3. LISINOPRIL [Concomitant]
     Indication: BLOOD PRESSURE
  4. HYDROXYCARBAMIDE [Concomitant]
     Indication: DRUG USE FOR UNKNOWN INDICATION
  5. SIMVASTATIN [Concomitant]
     Indication: BLOOD CHOLESTEROL
  6. METFORMIN HCL [Concomitant]
     Indication: BLOOD GLUCOSE
  7. HYDROCHLOROTHIAZIDE [Concomitant]
     Indication: DRUG USE FOR UNKNOWN INDICATION
  8. METOPROLOL TARTRATE [Concomitant]
     Indication: DRUG USE FOR UNKNOWN INDICATION

REACTIONS (1)
  - INJECTION SITE IRRITATION [None]
